FAERS Safety Report 11173226 (Version 7)
Quarter: 2017Q1

REPORT INFORMATION
  Report Type: Spontaneous
  Country: US (occurrence: US)
  Receive Date: 20150608
  Receipt Date: 20170307
  Transmission Date: 20170428
  Serious: Yes (Hospitalization, Other)
  Sender: FDA-Public Use
  Company Number: US-GLAXOSMITHKLINE-US2015GSK068053

PATIENT
  Age: 67 Year
  Sex: Female

DRUGS (10)
  1. FLOLAN [Suspect]
     Active Substance: EPOPROSTENOL SODIUM
     Dosage: 21 DF, CO
     Route: 042
  2. FLOLAN [Suspect]
     Active Substance: EPOPROSTENOL SODIUM
     Indication: PULMONARY HYPERTENSION
     Dosage: UNK, CO
  3. FLOLAN [Suspect]
     Active Substance: EPOPROSTENOL SODIUM
     Dosage: UNK
  4. FLOLAN [Suspect]
     Active Substance: EPOPROSTENOL SODIUM
     Dosage: 25 DF, CO
  5. FLOLAN [Suspect]
     Active Substance: EPOPROSTENOL SODIUM
     Indication: PULMONARY HYPERTENSION
     Dosage: 7 NG/KG/MIN CONTINUOUSLY
     Route: 042
     Dates: start: 20150508
  6. FLOLAN [Suspect]
     Active Substance: EPOPROSTENOL SODIUM
     Indication: PULMONARY ARTERIAL HYPERTENSION
     Dosage: 9 NG/KG/MIN CONTINUOUSLY
  7. OPSUMIT [Concomitant]
     Active Substance: MACITENTAN
  8. FLOLAN [Suspect]
     Active Substance: EPOPROSTENOL SODIUM
     Dosage: 7 NG/KG/MIN CONTINUOUSLY
     Route: 042
     Dates: start: 20150508
  9. FLOLAN [Suspect]
     Active Substance: EPOPROSTENOL SODIUM
     Indication: PULMONARY ARTERIAL HYPERTENSION
  10. REVATIO [Concomitant]
     Active Substance: SILDENAFIL CITRATE

REACTIONS (9)
  - Nausea [Recovering/Resolving]
  - Diarrhoea [Recovering/Resolving]
  - Pain in jaw [Unknown]
  - Tremor [Recovering/Resolving]
  - Peripheral swelling [Unknown]
  - Dyspnoea exertional [Recovering/Resolving]
  - Decreased appetite [Recovering/Resolving]
  - Device dislocation [Unknown]
  - Catheterisation cardiac [Recovered/Resolved]

NARRATIVE: CASE EVENT DATE: 201505
